FAERS Safety Report 10638318 (Version 1)
Quarter: 2014Q4

REPORT INFORMATION
  Report Type: Report from Study
  Country: BR (occurrence: BR)
  Receive Date: 20141208
  Receipt Date: 20141208
  Transmission Date: 20150529
  Serious: Yes (Other)
  Sender: FDA-Public Use
  Company Number: BR-ABBVIE-14P-020-1317408-00

PATIENT
  Sex: Female
  Weight: 61 kg

DRUGS (4)
  1. SYNTHROID [Suspect]
     Active Substance: LEVOTHYROXINE SODIUM
     Indication: THYROID DISORDER
     Dosage: 50 MCG DAILY IN THE MORNING DURING WEEKDAYS
     Route: 048
     Dates: start: 200809
  2. CALCIUM SANDOZ F [Concomitant]
     Active Substance: CALCIUM
     Indication: THYROID DISORDER
     Dosage: 3 UNITS PER DAY (DAILY DOSE: 1500 MG)
     Route: 048
  3. OSTRIOL [Concomitant]
     Active Substance: CALCITRIOL
     Indication: THYROID DISORDER
     Dosage: 0.25 MG DAILY IN THE MORNING
     Route: 048
  4. SYNTHROID [Suspect]
     Active Substance: LEVOTHYROXINE SODIUM
     Dosage: 75 MCG ON THE WEEKEND
     Route: 048
     Dates: start: 200809

REACTIONS (4)
  - Nervousness [Unknown]
  - Skin discolouration [Unknown]
  - Venous occlusion [Unknown]
  - Heart rate abnormal [Unknown]

NARRATIVE: CASE EVENT DATE: 2014
